FAERS Safety Report 10202993 (Version 1)
Quarter: 2014Q2

REPORT INFORMATION
  Report Type: Spontaneous
  Country: US (occurrence: US)
  Receive Date: 20140528
  Receipt Date: 20140528
  Transmission Date: 20141212
  Serious: No
  Sender: FDA-Public Use
  Company Number: US-009507513-1405USA008821

PATIENT
  Age: 19 Year
  Sex: 0
  Weight: 76.19 kg

DRUGS (2)
  1. NEXPLANON [Suspect]
     Dosage: UNKNOWN
     Route: 059
     Dates: start: 20140203, end: 20140203
  2. NEXPLANON [Suspect]
     Dosage: UNK
     Route: 059
     Dates: start: 20140203

REACTIONS (3)
  - Device difficult to use [Recovered/Resolved]
  - Product quality issue [Unknown]
  - No adverse event [Unknown]
